FAERS Safety Report 6158761-X (Version None)
Quarter: 2009Q2

REPORT INFORMATION
  Report Type: 
  Country: None (occurrence: None)
  Receive Date: 20090417
  Receipt Date: 20090407
  Transmission Date: 20091009
  Serious: Yes (Death, Life-Threatening)
  Sender: FDA-Public Use
  Company Number: B0568909A

PATIENT
  Sex: Female

DRUGS (3)
  1. ARIXTRA [Suspect]
     Indication: THROMBOSIS PROPHYLAXIS
     Dosage: 2.5MG PER DAY
     Route: 058
     Dates: start: 20090101, end: 20090309
  2. EXTRANASE [Concomitant]
     Indication: DRUG USE FOR UNKNOWN INDICATION
     Dosage: 3UNIT THREE TIMES PER DAY
     Route: 048
     Dates: end: 20090310
  3. KABIVEN [Concomitant]
     Dosage: 1UNIT PER DAY
     Route: 051
     Dates: start: 20090225, end: 20090310

REACTIONS (5)
  - ACTIVATED PARTIAL THROMBOPLASTIN TIME PROLONGED [None]
  - ANAEMIA [None]
  - GINGIVAL BLEEDING [None]
  - INCORRECT DRUG ADMINISTRATION DURATION [None]
  - THROMBOCYTOPENIA [None]
